FAERS Safety Report 7075063-8 (Version None)
Quarter: 2010Q4

REPORT INFORMATION
  Report Type: 
  Country: None (occurrence: None)
  Receive Date: 20101029
  Receipt Date: 20100331
  Transmission Date: 20110411
  Serious: No
  Sender: FDA-Public Use
  Company Number: US-WYE-H14463210

PATIENT
  Sex: Female

DRUGS (1)
  1. ADVIL PM [Suspect]
     Indication: INSOMNIA
     Dosage: UNKNOWN DOSE TAKEN AT 10:30 PM
     Route: 048

REACTIONS (2)
  - DRUG EFFECT PROLONGED [None]
  - SOMNOLENCE [None]
